FAERS Safety Report 10216722 (Version 1)
Quarter: 2014Q2

REPORT INFORMATION
  Report Type: Spontaneous
  Country: US (occurrence: US)
  Receive Date: 20140604
  Receipt Date: 20140604
  Transmission Date: 20141212
  Serious: Yes (Other)
  Sender: FDA-Public Use
  Company Number: US-PFIZER INC-2014150530

PATIENT
  Sex: Male

DRUGS (1)
  1. PREPARATION H HEMORRHOIDAL SUPPOSITORIES [Suspect]
     Indication: HAEMORRHOIDS
     Dosage: UNK

REACTIONS (4)
  - Anal injury [Unknown]
  - Skin burning sensation [Unknown]
  - Skin irritation [Unknown]
  - Pruritus [Unknown]
